FAERS Safety Report 7496106-3 (Version None)
Quarter: 2011Q2

REPORT INFORMATION
  Report Type: 
  Country: None (occurrence: None)
  Receive Date: 20110523
  Receipt Date: 20110509
  Transmission Date: 20111010
  Serious: Yes (Hospitalization, Other)
  Sender: FDA-Public Use
  Company Number: PHHY2011FR39722

PATIENT
  Age: 51 Year
  Sex: Female

DRUGS (1)
  1. ZOMETA [Suspect]
     Indication: METASTASES TO BONE
     Dosage: UNK
     Dates: start: 20100107

REACTIONS (7)
  - HEADACHE [None]
  - BALANCE DISORDER [None]
  - NAUSEA [None]
  - VOMITING [None]
  - DIZZINESS [None]
  - INTRACRANIAL PRESSURE INCREASED [None]
  - DIABETES MELLITUS [None]
